FAERS Safety Report 16887396 (Version 2)
Quarter: 2019Q4

REPORT INFORMATION
  Report Type: Spontaneous
  Country: US (occurrence: US)
  Receive Date: 20191004
  Receipt Date: 20191118
  Transmission Date: 20200122
  Serious: Yes (Hospitalization, Other)
  Sender: FDA-Public Use
  Company Number: US-009507513-1909USA015100

PATIENT
  Age: 53 Year
  Sex: Male

DRUGS (8)
  1. BACTRIM [Concomitant]
     Active Substance: SULFAMETHOXAZOLE\TRIMETHOPRIM
     Dosage: UNK
  2. INSULIN [Concomitant]
     Active Substance: INSULIN NOS
     Dosage: UNK
  3. DESCOVY [Concomitant]
     Active Substance: EMTRICITABINE\TENOFOVIR ALAFENAMIDE FUMARATE
     Indication: HIV INFECTION
     Dosage: DOSE 200/25 (UNITS NOT RPOVIDED), QD
  4. AZITHROMYCIN ANHYDROUS. [Concomitant]
     Active Substance: AZITHROMYCIN ANHYDROUS
     Dosage: UNK
  5. METFORMIN [Concomitant]
     Active Substance: METFORMIN HYDROCHLORIDE
     Dosage: UNK
  6. PIFELTRO [Suspect]
     Active Substance: DORAVIRINE
     Indication: HIV INFECTION
     Dosage: 1 TABLET EVERY DAY
     Route: 048
     Dates: start: 20190813, end: 20190916
  7. PREZCOBIX [Concomitant]
     Active Substance: COBICISTAT\DARUNAVIR ETHANOLATE
     Indication: HIV INFECTION
     Dosage: DOSE: 800/50 (UNITS NOT REPORTED)
     Route: 048
  8. LOSARTAN. [Concomitant]
     Active Substance: LOSARTAN
     Dosage: UNK

REACTIONS (5)
  - Sepsis [Recovering/Resolving]
  - Bacteraemia [Recovering/Resolving]
  - Thrombocytopenia [Not Recovered/Not Resolved]
  - Systemic inflammatory response syndrome [Unknown]
  - Pyelonephritis [Recovering/Resolving]

NARRATIVE: CASE EVENT DATE: 20190827
